FAERS Safety Report 9686865 (Version 3)
Quarter: 2013Q4

REPORT INFORMATION
  Report Type: Spontaneous
  Country: US (occurrence: US)
  Receive Date: 20131113
  Receipt Date: 20131122
  Transmission Date: 20140711
  Serious: Yes (Other)
  Sender: FDA-Public Use
  Company Number: US-PFIZER INC-2013323710

PATIENT
  Age: 55 Year
  Sex: Male

DRUGS (3)
  1. LYRICA [Suspect]
     Indication: OSTEOARTHRITIS
     Dosage: UNK
     Dates: start: 2012
  2. LYRICA [Suspect]
     Dosage: 150 MG, 2X/DAY
     Dates: start: 2013, end: 20131110
  3. TRAMADOL [Concomitant]
     Indication: OSTEOARTHRITIS
     Dosage: 100 MG, 2X/DAY

REACTIONS (3)
  - Off label use [Unknown]
  - Osteoarthritis [Unknown]
  - Drug ineffective for unapproved indication [Unknown]
